FAERS Safety Report 19525077 (Version 1)
Quarter: 2021Q3

REPORT INFORMATION
  Report Type: Spontaneous
  Country: CN (occurrence: CN)
  Receive Date: 20210712
  Receipt Date: 20210712
  Transmission Date: 20211014
  Serious: Yes (Other)
  Sender: FDA-Public Use
  Company Number: CN-BAXTER-2021BAX020067

PATIENT
  Age: 39 Year
  Sex: Male

DRUGS (2)
  1. 20% MANNITOL INJECTION [Suspect]
     Active Substance: MANNITOL
     Indication: DIURETIC THERAPY
  2. 20% MANNITOL INJECTION [Suspect]
     Active Substance: MANNITOL
     Indication: REDUCTION OF INCREASED INTRACRANIAL PRESSURE
     Route: 041
     Dates: start: 20210519, end: 20210522

REACTIONS (1)
  - Renal impairment [Recovering/Resolving]

NARRATIVE: CASE EVENT DATE: 20210522
